FAERS Safety Report 7582629-5 (Version None)
Quarter: 2011Q2

REPORT INFORMATION
  Report Type: 
  Country: None (occurrence: None)
  Receive Date: 20110630
  Receipt Date: 20110628
  Transmission Date: 20111010
  Serious: Yes (Hospitalization, Other)
  Sender: FDA-Public Use
  Company Number: US-PFIZER INC-2011144289

PATIENT
  Sex: Male
  Weight: 82.993 kg

DRUGS (14)
  1. BENAZEPRIL [Concomitant]
     Dosage: UNK
  2. SIMVASTATIN [Concomitant]
     Dosage: UNK
  3. FOLIC ACID [Concomitant]
     Dosage: UNK
  4. LAMOTRIGINE [Concomitant]
     Dosage: UNK
  5. LORAZEPAM [Concomitant]
     Dosage: UNK
  6. CHANTIX [Suspect]
     Indication: SMOKING CESSATION THERAPY
     Dosage: 0.5 MG, 1X/DAY
     Route: 048
     Dates: start: 20110601, end: 20110601
  7. METFORMIN [Concomitant]
     Indication: DIABETES MELLITUS
     Dosage: UNK
  8. COMBIVIR [Concomitant]
     Dosage: UNK
  9. GLIPIZIDE [Concomitant]
     Indication: DIABETES MELLITUS
     Dosage: UNK
  10. TAMSULOSIN [Concomitant]
     Dosage: UNK
  11. IPRATROPIUM [Concomitant]
     Dosage: UNK
  12. FLUOXETINE [Concomitant]
     Dosage: UNK
  13. CHANTIX [Suspect]
     Dosage: 0.5 MG, 2X/DAY
     Route: 048
     Dates: start: 20110601, end: 20110624
  14. NEXIUM [Concomitant]
     Dosage: UNK

REACTIONS (2)
  - OROPHARYNGEAL BLISTERING [None]
  - CHEST PAIN [None]
